FAERS Safety Report 19193977 (Version 1)
Quarter: 2021Q2

REPORT INFORMATION
  Report Type: Spontaneous
  Country: US (occurrence: US)
  Receive Date: 20210428
  Receipt Date: 20210428
  Transmission Date: 20210717
  Serious: Yes (Death)
  Sender: FDA-Public Use
  Company Number: None

PATIENT
  Age: 56 Year
  Sex: Female

DRUGS (1)
  1. TEMODAR [Suspect]
     Active Substance: TEMOZOLOMIDE
     Indication: BRAIN NEOPLASM MALIGNANT
     Dosage: 100MG 7 DAYS ON 7 OFF OTHER ORAL
     Route: 048
     Dates: start: 20201028, end: 20201105

REACTIONS (1)
  - Death [None]

NARRATIVE: CASE EVENT DATE: 20201105
